FAERS Safety Report 4988801-2 (Version None)
Quarter: 2006Q2

REPORT INFORMATION
  Report Type: 
  Country: None (occurrence: None)
  Receive Date: 20060502
  Receipt Date: 20060421
  Transmission Date: 20061013
  Serious: Yes (Other)
  Sender: FDA-Public Use
  Company Number: 2006UW07197

PATIENT
  Age: 74 Year
  Sex: Male
  Weight: 104.3 kg

DRUGS (9)
  1. CRESTOR [Suspect]
     Indication: BLOOD CHOLESTEROL INCREASED
     Route: 048
     Dates: start: 20060401, end: 20060401
  2. NIACINAMIDE [Suspect]
  3. CARDIZEM [Concomitant]
  4. R-INSULIN [Concomitant]
     Dosage: 20 UNITS AFTER EACH MEAL
  5. N-INSULIN [Concomitant]
     Dosage: 25 UNITS AT NIGHT, 35 UNITS IN THE MORNING
  6. LASIX [Concomitant]
  7. K+ [Concomitant]
  8. TOPROL-XL [Concomitant]
  9. MAGONATE [Concomitant]

REACTIONS (3)
  - ABASIA [None]
  - DIARRHOEA [None]
  - MYALGIA [None]
